FAERS Safety Report 26209721 (Version 1)
Quarter: 2025Q4

REPORT INFORMATION
  Report Type: Spontaneous
  Country: CN (occurrence: CN)
  Receive Date: 20251229
  Receipt Date: 20251229
  Transmission Date: 20260117
  Serious: Yes (Other)
  Sender: PFIZER
  Company Number: CN-PFIZER INC-PV202500150344

PATIENT
  Age: 3 Day
  Sex: Male
  Weight: 2.7 kg

DRUGS (2)
  1. AZITHROMYCIN [Suspect]
     Active Substance: AZITHROMYCIN
     Indication: Bacterial infection
     Dosage: 0.025 G, 1X/DAY
     Route: 048
     Dates: start: 20251122, end: 20251125
  2. CEFOTAXIME SODIUM [Suspect]
     Active Substance: CEFOTAXIME SODIUM
     Indication: Bacterial infection
     Dosage: 0.13 G, 1X/DAY
     Route: 041
     Dates: start: 20251121, end: 20251122

REACTIONS (6)
  - Rash neonatal [Recovered/Resolved]
  - Rash erythematous [Recovered/Resolved]
  - Platelet count decreased [Unknown]
  - Haemoglobin decreased [Unknown]
  - Red blood cell count decreased [Unknown]
  - Off label use [Unknown]

NARRATIVE: CASE EVENT DATE: 20251101
